FAERS Safety Report 23991361 (Version 1)
Quarter: 2024Q2

REPORT INFORMATION
  Report Type: Spontaneous
  Country: US (occurrence: US)
  Receive Date: 20240619
  Receipt Date: 20240619
  Transmission Date: 20240717
  Serious: No
  Sender: FDA-Public Use
  Company Number: US-PFIZER INC-202400194039

PATIENT
  Age: 75 Year
  Sex: Male
  Weight: 79.365 kg

DRUGS (1)
  1. CAVERJECT [Suspect]
     Active Substance: ALPROSTADIL
     Indication: Erectile dysfunction
     Dosage: UNK
     Dates: start: 1999

REACTIONS (3)
  - Discomfort [Unknown]
  - Erection increased [Unknown]
  - Product preparation issue [Unknown]
